FAERS Safety Report 24204875 (Version 2)
Quarter: 2024Q3

REPORT INFORMATION
  Report Type: Spontaneous
  Country: GB (occurrence: GB)
  Receive Date: 20240813
  Receipt Date: 20240824
  Transmission Date: 20241017
  Serious: Yes (Other)
  Sender: ACCORD
  Company Number: None

PATIENT
  Age: 13 Year
  Sex: Male

DRUGS (4)
  1. MONTELUKAST [Suspect]
     Active Substance: MONTELUKAST SODIUM
     Indication: Asthma
     Dosage: 5MG AT NIGHT
     Dates: end: 20240424
  2. ALBUTEROL [Concomitant]
     Active Substance: ALBUTEROL
     Indication: Asthma
  3. FLUTICASONE\FORMOTEROL [Concomitant]
     Active Substance: FLUTICASONE\FORMOTEROL
     Indication: Asthma
  4. MONTELUKAST [Suspect]
     Active Substance: MONTELUKAST SODIUM
     Indication: Asthma
     Dosage: DOSAGE LESS THAN 5MG AT NIGHT
     Dates: end: 20240424

REACTIONS (3)
  - Suicidal ideation [Recovering/Resolving]
  - Self-injurious ideation [Recovering/Resolving]
  - Self-destructive behaviour [Unknown]

NARRATIVE: CASE EVENT DATE: 20240110
